FAERS Safety Report 5341179-7 (Version None)
Quarter: 2007Q2

REPORT INFORMATION
  Report Type: 
  Country: None (occurrence: None)
  Receive Date: 20070405
  Receipt Date: 20070110
  Transmission Date: 20071010
  Serious: No
  Sender: FDA-Public Use
  Company Number: US200701002908

PATIENT
  Age: 55 Year
  Sex: Female

DRUGS (3)
  1. CYMBALTA [Suspect]
     Indication: DEPRESSION
  2. DIOVAN [Concomitant]
  3. HORMONES AND RELATED AGENTS [Concomitant]

REACTIONS (2)
  - ALCOHOLISM [None]
  - NIGHTMARE [None]
